FAERS Safety Report 8489860-5 (Version None)
Quarter: 2012Q3

REPORT INFORMATION
  Report Type: 
  Country: None (occurrence: None)
  Receive Date: 20120705
  Receipt Date: 20120629
  Transmission Date: 20120928
  Serious: Yes (Other)
  Sender: FDA-Public Use
  Company Number: PHHY2012IN056092

PATIENT
  Age: 48 Year
  Sex: Male

DRUGS (8)
  1. ISONIAZID [Concomitant]
  2. PYRAZINAMIDE [Concomitant]
  3. RIFAMPICIN [Suspect]
  4. AMLODIPINE [Concomitant]
     Dosage: 5 MG, UNK
  5. ETHAMBUTOL HYDROCHLORIDE [Concomitant]
  6. PRAZOSIN [Concomitant]
     Dosage: 5 MG AT BEDTIME
  7. AMLODIPINE [Concomitant]
     Dosage: 10 MG, UNK
  8. LOSARTAN POTASSIUM [Concomitant]
     Dosage: 50 MG, UNK

REACTIONS (2)
  - ACUTE LEFT VENTRICULAR FAILURE [None]
  - HYPERTENSION [None]
